FAERS Safety Report 22259149 (Version 2)
Quarter: 2023Q2

REPORT INFORMATION
  Report Type: Spontaneous
  Country: US (occurrence: US)
  Receive Date: 20230427
  Receipt Date: 20230503
  Transmission Date: 20230721
  Serious: Yes (Hospitalization, Other)
  Sender: FDA-Public Use
  Company Number: US-MLMSERVICE-20230414-4226901-1

PATIENT
  Age: 82 Year
  Sex: Female

DRUGS (2)
  1. CARBOPLATIN [Suspect]
     Active Substance: CARBOPLATIN
     Indication: Prophylactic chemotherapy
     Dosage: WEEKLY
  2. PACLITAXEL [Suspect]
     Active Substance: PACLITAXEL
     Indication: Prophylactic chemotherapy
     Dosage: WEEKLY

REACTIONS (2)
  - Acute kidney injury [Recovered/Resolved]
  - Autoimmune haemolytic anaemia [Recovered/Resolved]
